FAERS Safety Report 10101972 (Version 1)
Quarter: 2014Q2

REPORT INFORMATION
  Report Type: Spontaneous
  Country: US (occurrence: None)
  Receive Date: 20140423
  Receipt Date: 20140423
  Transmission Date: 20141212
  Serious: Yes (Other)
  Sender: FDA-Public Use
  Company Number: None

PATIENT
  Age: 13 Year
  Sex: Male
  Weight: 48.99 kg

DRUGS (4)
  1. AMPHETAMINE-DEXTROAMPHETAMINE [Suspect]
     Indication: ATTENTION DEFICIT/HYPERACTIVITY DISORDER
     Dates: start: 20140329
  2. AMPHETAMINE-DEXTROAMPHETAMINE [Suspect]
     Indication: AUTISM
     Dates: start: 20140329
  3. RISPERDAL [Concomitant]
  4. FLINSTONES MVI [Concomitant]

REACTIONS (6)
  - Headache [None]
  - Nausea [None]
  - Mood altered [None]
  - Pallor [None]
  - Educational problem [None]
  - Product substitution issue [None]
